FAERS Safety Report 5352768-8 (Version None)
Quarter: 2007Q2

REPORT INFORMATION
  Report Type: 
  Country: None (occurrence: None)
  Receive Date: 20070611
  Receipt Date: 20070529
  Transmission Date: 20071010
  Serious: Yes (Death)
  Sender: FDA-Public Use
  Company Number: IE-ELI_LILLY_AND_COMPANY-IE200705005022

PATIENT
  Age: 49 Year
  Sex: Male
  Weight: 120.63 kg

DRUGS (4)
  1. CYMBALTA [Suspect]
     Indication: DEPRESSION
     Dosage: 60 MG, DAILY (1/D)
     Route: 048
     Dates: start: 20070413
  2. QUETIAPINE [Concomitant]
     Indication: AGITATION
     Dosage: 200 MG, UNK
     Route: 048
     Dates: start: 20070414
  3. COVERSYL PLUS [Concomitant]
     Indication: HYPERTENSION
     Dosage: 1 D/F, UNK
     Route: 048
     Dates: start: 20070511
  4. ATENOLOL [Concomitant]
     Indication: HYPERTENSION
     Dosage: 100 MG, UNK
     Route: 048
     Dates: start: 20070511

REACTIONS (1)
  - ALCOHOL POISONING [None]
